FAERS Safety Report 15255858 (Version 1)
Quarter: 2018Q3

REPORT INFORMATION
  Report Type: Spontaneous
  Country: EG (occurrence: EG)
  Receive Date: 20180808
  Receipt Date: 20180808
  Transmission Date: 20181010
  Serious: Yes (Death)
  Sender: FDA-Public Use
  Company Number: EG-SA-2018SA213113

PATIENT
  Age: 2 Year
  Sex: Male
  Weight: 9 kg

DRUGS (4)
  1. CALCIUM [Concomitant]
     Active Substance: CALCIUM
     Indication: BONE DISORDER
     Dosage: 25 MG, QD
     Dates: start: 20160920
  2. CEREZYME [Suspect]
     Active Substance: IMIGLUCERASE
     Indication: GAUCHER^S DISEASE TYPE III
     Dosage: 60 IU/KG, QOW
     Route: 041
     Dates: start: 20161213, end: 20180130
  3. VITAMIN D [COLECALCIFEROL] [Concomitant]
     Indication: BONE DISORDER
     Dosage: 500 IU, QD
     Dates: start: 20160920
  4. DEPAKOTE [Concomitant]
     Active Substance: DIVALPROEX SODIUM
     Indication: EPILEPSY
     Dosage: 50 MG/KG, QD
     Dates: start: 20161213

REACTIONS (1)
  - Status epilepticus [Fatal]

NARRATIVE: CASE EVENT DATE: 20180207
